FAERS Safety Report 24789046 (Version 3)
Quarter: 2025Q3

REPORT INFORMATION
  Report Type: Spontaneous
  Country: EU (occurrence: EU)
  Receive Date: 20241230
  Receipt Date: 20250802
  Transmission Date: 20251020
  Serious: Yes (Other)
  Sender: ALEXION PHARMACEUTICALS
  Company Number: None

PATIENT
  Age: 89 Year
  Sex: Female
  Weight: 67 kg

DRUGS (15)
  1. OMEPRAZOLE [Suspect]
     Active Substance: OMEPRAZOLE
     Route: 065
  2. TICAGRELOR [Suspect]
     Active Substance: TICAGRELOR
     Indication: Infarction
     Dosage: 180 MILLIGRAM, QD, 90 MG MORNING AND EVENING
     Dates: start: 202308, end: 20240920
  3. URAPIDIL [Suspect]
     Active Substance: URAPIDIL
     Indication: Hypertension
     Route: 065
  4. URAPIDIL [Suspect]
     Active Substance: URAPIDIL
     Indication: Hypertension
     Dosage: 60 MILLIGRAM, QD, 30 MG MORNING AND EVENING
     Dates: start: 20240129, end: 20240920
  5. BISOPROLOL [Suspect]
     Active Substance: BISOPROLOL
     Indication: Infarction
     Dosage: 2.5 MILLIGRAM, QD, 2.5 MG IN THE MORNING
     Dates: start: 202308, end: 20240920
  6. KAYEXALATE [Suspect]
     Active Substance: SODIUM POLYSTYRENE SULFONATE
     Indication: Dyskalaemia
     Dosage: 3 DOSAGE FORM, QW, 1 MEASURING SPOON ON MONDAY WEDNESDAY AND SATURDAY
     Dates: start: 202205, end: 20240920
  7. VENLAFAXINE [Concomitant]
     Active Substance: VENLAFAXINE HYDROCHLORIDE
  8. KARDEGIC [Concomitant]
     Active Substance: ASPIRIN DL-LYSINE
  9. ATORVASTATIN [Concomitant]
     Active Substance: ATORVASTATIN
  10. GAVISCON [Concomitant]
     Active Substance: ALUMINUM HYDROXIDE\MAGNESIUM CARBONATE
  11. NITROGLYCERIN [Concomitant]
     Active Substance: NITROGLYCERIN
  12. VITAMIN D3 [Concomitant]
     Active Substance: CHOLECALCIFEROL
  13. LERCANIDIPINE [Concomitant]
     Active Substance: LERCANIDIPINE
  14. POLYETHYLENE GLYCOLS [Concomitant]
     Active Substance: POLYETHYLENE GLYCOLS
  15. DOLIPRANE [Concomitant]
     Active Substance: ACETAMINOPHEN

REACTIONS (2)
  - Interstitial lung disease [Recovering/Resolving]
  - Diastolic dysfunction [Recovering/Resolving]

NARRATIVE: CASE EVENT DATE: 20240624
